FAERS Safety Report 4623170-9 (Version None)
Quarter: 2005Q1

REPORT INFORMATION
  Report Type: 
  Country: None (occurrence: None)
  Receive Date: 20050329
  Receipt Date: 20050315
  Transmission Date: 20050727
  Serious: Yes (Death, Other)
  Sender: FDA-Public Use
  Company Number: 03-000232

PATIENT
  Age: 59 Year
  Sex: Female
  Weight: 67.1 kg

DRUGS (2)
  1. FEMHRT [Suspect]
     Indication: BONE DENSITY DECREASED
     Dosage: 5/1000 QD, ORAL
     Route: 048
     Dates: start: 20000701, end: 20020901
  2. HYDROCHLOROTHIAZIDE [Concomitant]

REACTIONS (1)
  - OVARIAN CANCER [None]
